FAERS Safety Report 9337766 (Version 3)
Quarter: 2013Q4

REPORT INFORMATION
  Report Type: Spontaneous
  Country: US (occurrence: US)
  Receive Date: 20130607
  Receipt Date: 20131218
  Transmission Date: 20140711
  Serious: Yes (Hospitalization)
  Sender: FDA-Public Use
  Company Number: US-B.I. PHARMACEUTICALS,INC./RIDGEFIELD-2013-BI-15916BP

PATIENT
  Age: 59 Year
  Sex: Female
  Weight: 111.13 kg

DRUGS (23)
  1. PRADAXA [Suspect]
     Indication: ATRIAL FIBRILLATION
     Dosage: 150 MG
     Dates: start: 201203, end: 201211
  2. ALBUTEROL [Concomitant]
     Route: 055
     Dates: start: 20080416, end: 2012
  3. AMBIEN [Concomitant]
  4. AMIODARONE [Concomitant]
     Dates: start: 20120312, end: 201206
  5. AMOX TR-K CLV [Concomitant]
  6. APRISMA CREAM [Concomitant]
  7. CARVEDILOL [Concomitant]
  8. DIAZEPAM [Concomitant]
  9. DILAUDID [Concomitant]
  10. FENTANYL [Concomitant]
  11. FOLIC ACID [Concomitant]
  12. LASIX [Concomitant]
  13. LEVOFLOXACIN [Concomitant]
  14. MORPHINE [Concomitant]
  15. NATURE S BLEND LACTOBACILLIN ACIDOPHILUS [Concomitant]
     Route: 048
  16. ONDANSENTRON HCL [Concomitant]
  17. PANTOPRAZOLE SOD DR [Concomitant]
  18. ALDACTONE [Concomitant]
  19. TRICOR [Concomitant]
  20. VICTOZA [Concomitant]
  21. VITAMIN D3 [Concomitant]
  22. WELCHOL [Concomitant]
  23. NOVOLIN [Concomitant]

REACTIONS (4)
  - Lower gastrointestinal haemorrhage [Recovered/Resolved]
  - Lower gastrointestinal haemorrhage [Recovered/Resolved]
  - Coagulopathy [Unknown]
  - Anaemia [Unknown]
